FAERS Safety Report 13416658 (Version 1)
Quarter: 2017Q2

REPORT INFORMATION
  Report Type: Spontaneous
  Country: GB (occurrence: GB)
  Receive Date: 20170407
  Receipt Date: 20170407
  Transmission Date: 20170830
  Serious: Yes (Death, Other)
  Sender: FDA-Public Use
  Company Number: GB-MUNDIPHARMA DS AND PHARMACOVIGILANCE-GBR-2017-0044497

PATIENT
  Sex: Female

DRUGS (4)
  1. MORPHINE SULFATE. [Suspect]
     Active Substance: MORPHINE SULFATE
     Indication: PRODUCT USED FOR UNKNOWN INDICATION
     Dosage: 35 MG, UNK
     Route: 065
  2. HYOSCINE [Suspect]
     Active Substance: SCOPOLAMINE
     Indication: PRODUCT USED FOR UNKNOWN INDICATION
     Route: 065
  3. THYROID HORMONES [Concomitant]
     Active Substance: UNSPECIFIED INGREDIENT
  4. DIAMORPHINE [Concomitant]
     Active Substance: DIAMORPHINE
     Dosage: 20 MG, UNK

REACTIONS (4)
  - Lung neoplasm malignant [Fatal]
  - Tachycardia [Fatal]
  - Overdose [Fatal]
  - Pallor [Fatal]
